FAERS Safety Report 6585128-2 (Version None)
Quarter: 2010Q1

REPORT INFORMATION
  Report Type: 
  Country: None (occurrence: None)
  Receive Date: 20100217
  Receipt Date: 20100205
  Transmission Date: 20100710
  Serious: Yes (Death, Hospitalization)
  Sender: FDA-Public Use
  Company Number: ES-PFIZER INC-2008004028

PATIENT
  Age: 50 Year
  Sex: Male

DRUGS (7)
  1. SUNITINIB MALATE [Suspect]
     Indication: NON-SMALL CELL LUNG CANCER
     Dosage: 50 MG, 1X/DAY
     Route: 048
     Dates: start: 20071217, end: 20080105
  2. SUNITINIB MALATE [Suspect]
     Indication: METASTASES TO CENTRAL NERVOUS SYSTEM
  3. ORFIDAL [Concomitant]
     Dosage: UNK
     Dates: start: 20080106, end: 20080131
  4. DEXAMETHASONE [Concomitant]
     Dosage: 4 MG, UNK
     Dates: start: 20071217, end: 20080131
  5. PANTOPRAZOL [Concomitant]
     Dosage: 20 MG, UNK
     Dates: start: 20071217, end: 20080131
  6. MORPHINE [Concomitant]
     Dosage: 10 MG, UNK
     Dates: start: 20071217, end: 20080131
  7. FENTANYL [Concomitant]
     Dosage: 100 MG, UNK
     Dates: start: 20071217, end: 20080131

REACTIONS (1)
  - PULMONARY EMBOLISM [None]
